FAERS Safety Report 7212308-5 (Version None)
Quarter: 2011Q1

REPORT INFORMATION
  Report Type: 
  Country: None (occurrence: None)
  Receive Date: 20110106
  Receipt Date: 20110103
  Transmission Date: 20110831
  Serious: Yes (Death)
  Sender: FDA-Public Use
  Company Number: PHHY2010DK78504

PATIENT
  Age: 80 Year
  Sex: Male

DRUGS (7)
  1. TRIMOPAN [Concomitant]
     Dosage: 100 MG, QD
     Route: 048
     Dates: start: 20090114
  2. ACLASTA [Suspect]
     Dosage: 5 MG, UNK
     Route: 042
     Dates: start: 20100318
  3. BUMEX [Concomitant]
     Dosage: 0.5 MG, QD
     Route: 048
     Dates: start: 20081223
  4. ACLASTA [Suspect]
     Indication: OSTEOPOROSIS
     Dosage: UNK
     Route: 042
     Dates: start: 20090317
  5. RASILEZ [Concomitant]
     Dosage: 150 MG, QD
     Route: 048
  6. SPIRIX [Concomitant]
     Dosage: 125 MG, Q5H
     Route: 048
  7. ALLOPURINOL [Concomitant]
     Dosage: 100 MG, QD
     Route: 048
     Dates: start: 20070407

REACTIONS (7)
  - ACUTE MYOCARDIAL INFARCTION [None]
  - ATRIAL FIBRILLATION [None]
  - RENAL FAILURE ACUTE [None]
  - VENTRICULAR TACHYCARDIA [None]
  - BLOOD CREATININE INCREASED [None]
  - TUBULOINTERSTITIAL NEPHRITIS [None]
  - HYPOTENSION [None]
